FAERS Safety Report 16264365 (Version 7)
Quarter: 2020Q3

REPORT INFORMATION
  Report Type: Report from Study
  Country: FI (occurrence: FI)
  Receive Date: 20190502
  Receipt Date: 20200713
  Transmission Date: 20201102
  Serious: Yes (Death, Life-Threatening, Hospitalization, Other)
  Sender: FDA-Public Use
  Company Number: FI-MYLANLABS-2019M1041319

PATIENT
  Age: 75 Year
  Sex: Female
  Weight: 63 kg

DRUGS (38)
  1. OXANEST [Concomitant]
     Active Substance: OXYCODONE HYDROCHLORIDE
     Indication: PAIN
     Dosage: UNK
     Route: 042
     Dates: start: 20181110
  2. OXANEST [Concomitant]
     Active Substance: OXYCODONE HYDROCHLORIDE
     Indication: OSTEOARTHRITIS
  3. PANTOPRAZOL                        /01263201/ [Concomitant]
     Active Substance: PANTOPRAZOLE
     Indication: PROPHYLAXIS
     Dosage: UNK
     Route: 048
     Dates: start: 20180328, end: 20200418
  4. KLEXANE [Concomitant]
     Active Substance: ENOXAPARIN
     Indication: ACUTE CORONARY SYNDROME
     Dosage: UNK
     Route: 058
     Dates: start: 20181110, end: 20181112
  5. PREDNISOLON                        /00016201/ [Concomitant]
     Active Substance: PREDNISOLONE
     Indication: INTERSTITIAL LUNG DISEASE
     Dosage: UNK
     Route: 048
     Dates: start: 20180417, end: 20200418
  6. FUROSEMIDE. [Concomitant]
     Active Substance: FUROSEMIDE
     Indication: PULMONARY ARTERIAL HYPERTENSION
     Dosage: UNK
     Route: 048
     Dates: start: 20180813, end: 20200418
  7. CLOPIDOGREL [Suspect]
     Active Substance: CLOPIDOGREL BISULFATE
     Indication: ACUTE CORONARY SYNDROME
     Dosage: UNK
     Route: 048
     Dates: start: 20181110, end: 20181111
  8. CLOPIDOGREL [Interacting]
     Active Substance: CLOPIDOGREL BISULFATE
     Indication: CHEST PAIN
     Dosage: UNK
  9. UPTRAVI [Interacting]
     Active Substance: SELEXIPAG
     Dosage: 1600 MICROGRAM, QD
     Route: 048
     Dates: start: 20181029, end: 20181105
  10. OXANEST [Concomitant]
     Active Substance: OXYCODONE HYDROCHLORIDE
     Indication: NAUSEA
     Dosage: UNK
     Route: 042
     Dates: start: 20181111, end: 20181111
  11. ATORVASTATIN [Concomitant]
     Active Substance: ATORVASTATIN
     Indication: DYSLIPIDAEMIA
     Dosage: UNK
     Route: 048
     Dates: start: 20160615, end: 20200418
  12. GAVISCON                           /06182501/ [Concomitant]
     Indication: DYSPEPSIA
     Dosage: UNK
     Route: 048
     Dates: start: 20180328, end: 20181110
  13. PRIMPERAN [Concomitant]
     Active Substance: METOCLOPRAMIDE HYDROCHLORIDE
     Indication: NAUSEA
     Dosage: UNK
     Route: 042
     Dates: start: 20181111, end: 20181111
  14. SPIRONOLACTONE. [Concomitant]
     Active Substance: SPIRONOLACTONE
     Indication: PULMONARY ARTERIAL HYPERTENSION
     Dosage: UNK
     Route: 048
     Dates: start: 20180813, end: 20200418
  15. PROLIA [Concomitant]
     Active Substance: DENOSUMAB
     Indication: PULMONARY FIBROSIS
     Dosage: UNK
     Route: 058
     Dates: start: 20180809, end: 20200418
  16. ONDANSETRON [Concomitant]
     Active Substance: ONDANSETRON
     Dosage: UNK
     Route: 042
     Dates: start: 20181111, end: 20181111
  17. CARDACE                            /00885601/ [Concomitant]
     Active Substance: RAMIPRIL
     Indication: CORONARY ARTERY DISEASE
     Dosage: UNK
     Route: 048
     Dates: start: 20160406, end: 20200418
  18. EMCONCOR [Concomitant]
     Active Substance: BISOPROLOL FUMARATE
     Indication: CORONARY ARTERY DISEASE
     Dosage: UNK
     Route: 048
     Dates: start: 20180813, end: 20200418
  19. ARTELAC                            /00445101/ [Concomitant]
     Active Substance: HYPROMELLOSES
     Indication: DRY EYE
     Dosage: UNK
     Route: 050
     Dates: start: 20180101, end: 20200418
  20. PREDNISOLON                        /00016201/ [Concomitant]
     Active Substance: PREDNISOLONE
     Indication: PULMONARY FIBROSIS
  21. SILDENAFIL. [Concomitant]
     Active Substance: SILDENAFIL
     Indication: PULMONARY ARTERIAL HYPERTENSION
     Dosage: 1 DOSAGE FORM, QD
     Route: 048
     Dates: start: 20160204
  22. SILDENAFIL. [Concomitant]
     Active Substance: SILDENAFIL
     Dosage: 120 MILLIGRAM, QD
     Route: 048
     Dates: start: 20160204
  23. PRIMASPAN [Concomitant]
     Active Substance: ASPIRIN
     Indication: CORONARY ARTERY DISEASE
     Dosage: UNK
     Route: 048
     Dates: start: 20150906, end: 20181114
  24. CALCIUMCARBONAT [Concomitant]
     Indication: PROPHYLAXIS
     Dosage: UNK
     Route: 048
     Dates: start: 20160509, end: 20200418
  25. COHEMIN [Concomitant]
     Indication: VITAMIN B12 DEFICIENCY
     Dosage: UNK
     Route: 030
     Dates: start: 20121006, end: 20200418
  26. OPSUMIT [Suspect]
     Active Substance: MACITENTAN
     Indication: PULMONARY ARTERIAL HYPERTENSION
     Dosage: 10 MILLIGRAM, QD
     Route: 048
     Dates: start: 20160519
  27. UPTRAVI [Interacting]
     Active Substance: SELEXIPAG
     Indication: PULMONARY ARTERIAL HYPERTENSION
     Dosage: 400 MCG, QD
     Route: 048
     Dates: start: 20181022, end: 20181028
  28. UPTRAVI [Interacting]
     Active Substance: SELEXIPAG
     Dosage: 400 MICROGRAM, QD
     Route: 048
     Dates: start: 20181022, end: 20181028
  29. ATROVENT [Concomitant]
     Active Substance: IPRATROPIUM BROMIDE
     Indication: INTERSTITIAL LUNG DISEASE
     Dosage: UNK
     Route: 055
     Dates: start: 20160330, end: 20200418
  30. AZAMUN [Concomitant]
     Active Substance: AZATHIOPRINE
     Indication: PULMONARY FIBROSIS
     Dosage: UNK
     Route: 048
     Dates: start: 20180906, end: 20200418
  31. CEFUROXIME. [Concomitant]
     Active Substance: CEFUROXIME
     Indication: PNEUMONIA
     Dosage: UNK
     Route: 048
     Dates: start: 20180809, end: 20181110
  32. ONDANSETRON [Concomitant]
     Active Substance: ONDANSETRON
     Indication: NAUSEA
     Dosage: UNK
     Route: 042
     Dates: start: 20181110
  33. CLOPIDOGREL [Interacting]
     Active Substance: CLOPIDOGREL BISULFATE
     Indication: MYOCARDIAL ISCHAEMIA
  34. UPTRAVI [Interacting]
     Active Substance: SELEXIPAG
     Dosage: 1200 MCG, QD
     Route: 048
     Dates: start: 20181105, end: 20181112
  35. OXANEST [Concomitant]
     Active Substance: OXYCODONE HYDROCHLORIDE
     Indication: ACUTE CORONARY SYNDROME
     Dosage: UNK
  36. NITRO                              /00003201/ [Concomitant]
     Active Substance: NITROGLYCERIN
     Indication: CORONARY ARTERY DISEASE
     Dosage: UNK
     Route: 065
     Dates: start: 20120823, end: 20200418
  37. UPTRAVI [Interacting]
     Active Substance: SELEXIPAG
     Dosage: 800 MICROGRAM, QD (400 MICROGRAM,BID)
     Route: 048
     Dates: start: 20181029, end: 20181105
  38. UPTRAVI [Interacting]
     Active Substance: SELEXIPAG
     Dosage: 2400 MICROGRAM, QW
     Route: 048
     Dates: start: 20181105, end: 20181112

REACTIONS (22)
  - Angina unstable [Unknown]
  - N-terminal prohormone brain natriuretic peptide increased [Recovered/Resolved]
  - Drug interaction [Unknown]
  - Gastrointestinal haemorrhage [Recovered/Resolved]
  - Haematochezia [Recovered/Resolved]
  - Cardiac arrest [Fatal]
  - Troponin T increased [Recovered/Resolved]
  - Osteoarthritis [Unknown]
  - Transfusion [Unknown]
  - Dyspnoea [Not Recovered/Not Resolved]
  - Pneumonia [Not Recovered/Not Resolved]
  - Anaemia [Unknown]
  - Myocardial ischaemia [Recovered/Resolved]
  - Stent placement [Unknown]
  - Pyrexia [Not Recovered/Not Resolved]
  - Angina pectoris [Recovered/Resolved]
  - Acute myocardial infarction [Recovered/Resolved]
  - Cough [Not Recovered/Not Resolved]
  - Electrocardiogram change [Recovered/Resolved]
  - Percutaneous coronary intervention [Unknown]
  - Nausea [Recovered/Resolved]
  - Chest pain [Recovered/Resolved]

NARRATIVE: CASE EVENT DATE: 20181110
